FAERS Safety Report 6505605-X (Version None)
Quarter: 2009Q4

REPORT INFORMATION
  Report Type: 
  Country: None (occurrence: None)
  Receive Date: 20091218
  Receipt Date: 20091207
  Transmission Date: 20100525
  Serious: Yes (Other)
  Sender: FDA-Public Use
  Company Number: CN-PFIZER INC-2009306394

PATIENT
  Age: 70 Year
  Sex: Female

DRUGS (5)
  1. LIPITOR [Suspect]
     Indication: HYPERLIPIDAEMIA
     Dosage: 20 MG, 1X/DAY
     Route: 048
     Dates: start: 20091012, end: 20091028
  2. LIPITOR [Suspect]
     Indication: ARTERIOSCLEROSIS
  3. PROBUCOL [Concomitant]
     Dosage: 0.25 G, 2X/DAY
     Dates: end: 20091028
  4. METHYCOBAL [Concomitant]
     Dosage: 0.5 MG, 3X/DAY
     Dates: end: 20091028
  5. CALTRATE [Concomitant]
     Dosage: 500 MG, 1X/DAY
     Dates: end: 20091028

REACTIONS (7)
  - ABDOMINAL DISCOMFORT [None]
  - ALOPECIA [None]
  - BLOOD GLUCOSE INCREASED [None]
  - BLOOD URIC ACID INCREASED [None]
  - DRY MOUTH [None]
  - GLOBULINS INCREASED [None]
  - THROAT IRRITATION [None]
